FAERS Safety Report 8538870-8 (Version None)
Quarter: 2012Q3

REPORT INFORMATION
  Report Type: 
  Country: None (occurrence: None)
  Receive Date: 20120726
  Receipt Date: 20120720
  Transmission Date: 20120928
  Serious: Yes (Other)
  Sender: FDA-Public Use
  Company Number: JP-009507513-1207JPN008145

PATIENT

DRUGS (7)
  1. PEG-INTRON [Suspect]
     Indication: HEPATITIS C
     Dosage: 1.5MCG/KG/WEEK
     Route: 058
     Dates: start: 20120507
  2. REBETOL [Suspect]
     Indication: HEPATITIS C
     Route: 048
     Dates: start: 20120507, end: 20120527
  3. REBETOL [Suspect]
     Route: 048
     Dates: start: 20120604
  4. ALLOPURINOL [Concomitant]
     Route: 048
     Dates: start: 20120604
  5. LENDORMIN D [Concomitant]
     Dosage: DAILY DOSAGE UNKNOWN
     Route: 048
  6. REBETOL [Suspect]
     Route: 048
     Dates: start: 20120528, end: 20120603
  7. TELAVIC [Suspect]
     Indication: HEPATITIS C
     Route: 048
     Dates: start: 20120507

REACTIONS (1)
  - HYPERURICAEMIA [None]
